FAERS Safety Report 18191245 (Version 1)
Quarter: 2020Q3

REPORT INFORMATION
  Report Type: Spontaneous
  Country: DE (occurrence: DE)
  Receive Date: 20200825
  Receipt Date: 20200825
  Transmission Date: 20201103
  Serious: Yes (Hospitalization)
  Sender: FDA-Public Use
  Company Number: DE-TEVA-2020-DE-1817139

PATIENT
  Age: 58 Year
  Sex: Male
  Weight: 70 kg

DRUGS (1)
  1. CEFACLOR. [Suspect]
     Active Substance: CEFACLOR
     Dosage: 1500 MILLIGRAM DAILY; 1?1?1?0
     Route: 048

REACTIONS (4)
  - Feeling hot [Unknown]
  - Swelling face [Unknown]
  - Erythema [Unknown]
  - Localised infection [Unknown]
